FAERS Safety Report 15574602 (Version 3)
Quarter: 2018Q4

REPORT INFORMATION
  Report Type: Spontaneous
  Country: IT (occurrence: IT)
  Receive Date: 20181101
  Receipt Date: 20181114
  Transmission Date: 20190205
  Serious: Yes (Hospitalization)
  Sender: FDA-Public Use
  Company Number: IT-VERTEX PHARMACEUTICALS-2018-007795

PATIENT
  Age: 16 Year
  Sex: Male

DRUGS (10)
  1. DEURSIL [Concomitant]
     Active Substance: URSODIOL
  2. HYANEB [Concomitant]
  3. VANTOBRA [Concomitant]
  4. ALIFLUS [Concomitant]
     Active Substance: FLUTICASONE PROPIONATE\SALMETEROL XINAFOATE
  5. CREON [Concomitant]
     Active Substance: PANCRELIPASE AMYLASE\PANCRELIPASE LIPASE\PANCRELIPASE PROTEASE
  6. PULMOZYME [Concomitant]
     Active Substance: DORNASE ALFA
  7. QUINSAIR [Concomitant]
  8. BRONCOVALEAS                       /00139501/ [Concomitant]
     Active Substance: ALBUTEROL
  9. ORKAMBI [Suspect]
     Active Substance: IVACAFTOR\LUMACAFTOR
     Indication: CYSTIC FIBROSIS
     Dosage: 2 DOSAGE FORM, BID
     Route: 048
     Dates: start: 20170707, end: 20180710
  10. AZITROMICINA [Concomitant]
     Active Substance: AZITHROMYCIN DIHYDRATE

REACTIONS (2)
  - Dyspnoea [Not Recovered/Not Resolved]
  - Pulmonary function test decreased [Not Recovered/Not Resolved]

NARRATIVE: CASE EVENT DATE: 20180624
